FAERS Safety Report 15463552 (Version 1)
Quarter: 2018Q4

REPORT INFORMATION
  Report Type: Spontaneous
  Country: US (occurrence: US)
  Receive Date: 20181001
  Receipt Date: 20181001
  Transmission Date: 20190204
  Serious: No
  Sender: FDA-Public Use
  Company Number: None

PATIENT
  Age: 71 Year
  Sex: Male
  Weight: 83.01 kg

DRUGS (1)
  1. AIMOVIG [Suspect]
     Active Substance: ERENUMAB-AOOE
     Indication: MIGRAINE
     Dosage: ?          OTHER STRENGTH:70;QUANTITY:1 SHOT;OTHER FREQUENCY:ONCE MONTHLY;OTHER ROUTE:INJECTION?
     Dates: start: 20180914, end: 20180914

REACTIONS (7)
  - Tremor [None]
  - Feeling abnormal [None]
  - Anxiety [None]
  - Nervousness [None]
  - Headache [None]
  - Arthralgia [None]
  - Drug ineffective [None]

NARRATIVE: CASE EVENT DATE: 20180914
